FAERS Safety Report 4837330-5 (Version None)
Quarter: 2005Q4

REPORT INFORMATION
  Report Type: 
  Country: None (occurrence: None)
  Receive Date: 20051122
  Receipt Date: 20051109
  Transmission Date: 20060501
  Serious: Yes (Hospitalization)
  Sender: FDA-Public Use
  Company Number: 05-0081PO

PATIENT
  Age: 76 Year
  Sex: Female

DRUGS (7)
  1. PONTAL (MEFENAMIC ACID) [Suspect]
     Indication: PERIODONTAL DISEASE
     Dosage: 250 MG, TID, ORAL
     Route: 048
     Dates: start: 20050630, end: 20050630
  2. CLARITHROMYCIN [Suspect]
     Indication: PERIODONTAL DISEASE
     Dosage: 200MG BID, ORAL
     Route: 048
     Dates: start: 20050630, end: 20050630
  3. LOXONIN (LOXOPROFEN SODIUM) [Concomitant]
  4. CEFACLOR [Concomitant]
  5. DILTIAZEM HYDROCHLORIDE [Concomitant]
  6. BEHYD (BENZYLHYDROCHLOROTHIAZIDE) [Concomitant]
  7. ALFAROL (ALFACALCIDOL) [Concomitant]

REACTIONS (5)
  - DYSPNOEA [None]
  - LOSS OF CONSCIOUSNESS [None]
  - PRURITUS [None]
  - SHOCK [None]
  - VISION BLURRED [None]
